FAERS Safety Report 6516074-8 (Version None)
Quarter: 2009Q4

REPORT INFORMATION
  Report Type: 
  Country: None (occurrence: None)
  Receive Date: 20091223
  Receipt Date: 20091020
  Transmission Date: 20100525
  Serious: No
  Sender: FDA-Public Use
  Company Number: US-ABBOTT-09P-163-0604470-00

PATIENT
  Sex: Female
  Weight: 112.14 kg

DRUGS (6)
  1. LUPRON DEPOT [Suspect]
     Indication: HORMONE SUPPRESSION THERAPY
     Route: 050
     Dates: start: 20050101
  2. CARDIZEM CD [Concomitant]
     Indication: HYPERTENSION
     Route: 048
  3. DYAZIDE [Concomitant]
     Indication: HYPERTENSION
     Route: 048
  4. LEVOTHYROXINE SODIUM [Concomitant]
     Indication: HYPOTHYROIDISM
     Route: 048
  5. NEXIUM [Concomitant]
     Indication: GASTROOESOPHAGEAL REFLUX DISEASE
     Route: 048
  6. AROMASIN [Concomitant]
     Indication: BREAST CANCER
     Route: 048

REACTIONS (3)
  - JOINT RANGE OF MOTION DECREASED [None]
  - JOINT SWELLING [None]
  - JOINT WARMTH [None]
